FAERS Safety Report 14380652 (Version 1)
Quarter: 2018Q1

REPORT INFORMATION
  Report Type: Spontaneous
  Country: US (occurrence: US)
  Receive Date: 20180112
  Receipt Date: 20180112
  Transmission Date: 20180509
  Serious: No
  Sender: FDA-Public Use
  Company Number: US-GLAXOSMITHKLINE-US2018001422

PATIENT
  Age: 84 Year
  Sex: Female

DRUGS (1)
  1. FLONASE [Suspect]
     Active Substance: FLUTICASONE PROPIONATE
     Indication: NASOPHARYNGITIS
     Dosage: UNK
     Route: 045
     Dates: start: 20171221, end: 20180102

REACTIONS (6)
  - Nasal discomfort [Recovering/Resolving]
  - Otorrhoea [Recovering/Resolving]
  - Nasal discharge discolouration [Recovering/Resolving]
  - Epistaxis [Recovering/Resolving]
  - Nasal crusting [Recovering/Resolving]
  - Product use in unapproved indication [Recovering/Resolving]

NARRATIVE: CASE EVENT DATE: 20171230
